FAERS Safety Report 4873166-7 (Version None)
Quarter: 2006Q1

REPORT INFORMATION
  Report Type: 
  Country: None (occurrence: None)
  Receive Date: 20060103
  Receipt Date: 20060103
  Transmission Date: 20060701
  Serious: No
  Sender: FDA-Public Use
  Company Number: None

PATIENT
  Age: 65 Year
  Sex: Female
  Weight: 90.7194 kg

DRUGS (3)
  1. POTASSIUM CHLORIDE [Suspect]
     Indication: HYPOKALAEMIA
     Dosage: 10MEQ  QID  PO
     Route: 048
     Dates: start: 20051201, end: 20051212
  2. POTASSIUM CHLORIDE [Suspect]
     Indication: VENTRICULAR FIBRILLATION
     Dosage: 10MEQ  QID  PO
     Route: 048
     Dates: start: 20051201, end: 20051212
  3. POTASSIUM CHLORIDE [Concomitant]

REACTIONS (3)
  - DRUG INEFFECTIVE [None]
  - MEDICATION RESIDUE [None]
  - PHARMACEUTICAL PRODUCT COMPLAINT [None]
